FAERS Safety Report 8535493-1 (Version None)
Quarter: 2012Q3

REPORT INFORMATION
  Report Type: 
  Country: None (occurrence: None)
  Receive Date: 20120725
  Receipt Date: 20120711
  Transmission Date: 20120928
  Serious: Yes (Hospitalization)
  Sender: FDA-Public Use
  Company Number: GB-009507513-1207GBR005343

PATIENT

DRUGS (5)
  1. DEXAMETHASONE [Suspect]
     Dosage: 10 MG, UNK
     Route: 048
     Dates: start: 20120110, end: 20120314
  2. ACETAMINOPHEN [Concomitant]
     Indication: PROPHYLAXIS
     Route: 048
  3. ASPIRIN [Concomitant]
     Indication: PROPHYLAXIS
     Dosage: 75 MG, QD
     Route: 048
  4. VELCADE [Suspect]
     Indication: MULTIPLE MYELOMA
     Dosage: 2.3 MG, UNK
     Route: 058
     Dates: start: 20120110, end: 20120314
  5. PROCHLORPERAZINE [Concomitant]

REACTIONS (4)
  - ORTHOSTATIC HYPOTENSION [None]
  - OFF LABEL USE [None]
  - AGITATION [None]
  - CONFUSIONAL STATE [None]
